FAERS Safety Report 13890674 (Version 2)
Quarter: 2017Q3

REPORT INFORMATION
  Report Type: Spontaneous
  Country: US (occurrence: US)
  Receive Date: 20170822
  Receipt Date: 20170823
  Transmission Date: 20171127
  Serious: Yes (Death, Other)
  Sender: FDA-Public Use
  Company Number: US-PFIZER INC-2017360207

PATIENT
  Age: 84 Year
  Sex: Male
  Weight: 93 kg

DRUGS (2)
  1. JANUMET [Concomitant]
     Active Substance: METFORMIN HYDROCHLORIDE\SITAGLIPTIN PHOSPHATE
     Dosage: 1 DF (50MG/1000MG), 2X/DAY
     Dates: end: 20170816
  2. LYRICA [Suspect]
     Active Substance: PREGABALIN
     Indication: DIABETIC NEUROPATHY
     Dosage: 100 MG, 2X/DAY
     Route: 048
     Dates: end: 20170816

REACTIONS (5)
  - Pneumonia [Fatal]
  - Dyspnoea [Unknown]
  - Myocardial infarction [Fatal]
  - Aspiration [Fatal]
  - Cough [Unknown]

NARRATIVE: CASE EVENT DATE: 20170815
